FAERS Safety Report 9032464 (Version 1)
Quarter: 2013Q1

REPORT INFORMATION
  Report Type: Spontaneous
  Country: SE (occurrence: SE)
  Receive Date: 20130125
  Receipt Date: 20130125
  Transmission Date: 20140127
  Serious: Yes (Hospitalization)
  Sender: FDA-Public Use
  Company Number: SE-GLAXOSMITHKLINE-B0861519A

PATIENT
  Age: 66 Year
  Sex: Female

DRUGS (16)
  1. VOTRIENT [Suspect]
     Indication: PRODUCT USED FOR UNKNOWN INDICATION
     Route: 065
     Dates: start: 20120907, end: 201210
  2. OXYNORM [Concomitant]
     Route: 065
  3. PRIMPERAN [Concomitant]
     Route: 065
  4. OMEPRAZOL [Concomitant]
     Route: 065
  5. ZOLPIDEM [Concomitant]
     Route: 065
  6. KALCIPOS D [Concomitant]
     Route: 065
  7. LAKTULOS [Concomitant]
     Route: 065
  8. SUTENT [Concomitant]
     Route: 065
  9. AMLODIPIN [Concomitant]
     Route: 065
  10. FRAGMIN [Concomitant]
     Route: 065
  11. AFINITOR [Concomitant]
     Route: 065
  12. DELTISON [Concomitant]
     Route: 065
  13. TAVEGYL [Concomitant]
     Route: 065
  14. LAXOBERAL [Concomitant]
     Route: 065
  15. IPREN [Concomitant]
     Route: 065
  16. OXYCONTIN [Concomitant]
     Route: 065

REACTIONS (5)
  - Fatigue [Unknown]
  - Jaundice [Unknown]
  - Hepatotoxicity [Unknown]
  - Nausea [Unknown]
  - Chromaturia [Unknown]
